FAERS Safety Report 7454699-6 (Version None)
Quarter: 2011Q2

REPORT INFORMATION
  Report Type: 
  Country: None (occurrence: None)
  Receive Date: 20110503
  Receipt Date: 20100420
  Transmission Date: 20111010
  Serious: Yes (Other)
  Sender: FDA-Public Use
  Company Number: US-PFIZER INC-2009292894

PATIENT
  Sex: Female
  Weight: 98 kg

DRUGS (6)
  1. CLIMARA [Suspect]
     Indication: HORMONE REPLACEMENT THERAPY
     Dosage: UNK
     Dates: start: 19960101, end: 19990101
  2. PROVERA [Suspect]
     Indication: HORMONE REPLACEMENT THERAPY
     Dosage: UNK
     Route: 048
     Dates: start: 19960101, end: 19990101
  3. ACTIVELLA [Suspect]
     Indication: HORMONE REPLACEMENT THERAPY
     Dosage: UNK
     Dates: start: 20001017, end: 20010101
  4. SYNTHROID [Concomitant]
     Dosage: UNK
     Dates: start: 19830101
  5. TRIAMTERENE [Concomitant]
     Indication: FLUID RETENTION
     Dosage: UNK
     Dates: start: 19990101
  6. COMBIPATCH [Suspect]
     Indication: HORMONE REPLACEMENT THERAPY
     Dosage: UNK
     Dates: start: 19990501, end: 20000801

REACTIONS (1)
  - BREAST CANCER FEMALE [None]
